FAERS Safety Report 16233486 (Version 2)
Quarter: 2019Q2

REPORT INFORMATION
  Report Type: Spontaneous
  Country: US (occurrence: US)
  Receive Date: 20190424
  Receipt Date: 20190429
  Transmission Date: 20190711
  Serious: Yes (Death, Other)
  Sender: FDA-Public Use
  Company Number: US-PFIZER INC-2019172050

PATIENT
  Age: 71 Year
  Sex: Female

DRUGS (6)
  1. AMIODARONE HCL [Suspect]
     Active Substance: AMIODARONE HYDROCHLORIDE
     Indication: VENTRICULAR TACHYCARDIA
     Dosage: UNK
  2. AMIODARONE HCL [Suspect]
     Active Substance: AMIODARONE HYDROCHLORIDE
     Indication: CARDIOVERSION
  3. LIDOCAINE HCL [Suspect]
     Active Substance: LIDOCAINE HYDROCHLORIDE
     Indication: CARDIOVERSION
  4. IPILIMUMAB [Concomitant]
     Active Substance: IPILIMUMAB
     Indication: IMMUNOSUPPRESSANT DRUG THERAPY
     Dosage: UNK
  5. MYCOPHENOLATE MOFETIL. [Suspect]
     Active Substance: MYCOPHENOLATE MOFETIL
     Indication: MYOCARDITIS
     Dosage: UNK
  6. LIDOCAINE HCL [Suspect]
     Active Substance: LIDOCAINE HYDROCHLORIDE
     Indication: VENTRICULAR TACHYCARDIA
     Dosage: UNK

REACTIONS (7)
  - Propionibacterium infection [Fatal]
  - Bacteraemia [Fatal]
  - Drug ineffective [Fatal]
  - Autoimmune myocarditis [Fatal]
  - Multiple organ dysfunction syndrome [Fatal]
  - Lymphocytic infiltration [Fatal]
  - Disseminated intravascular coagulation [Fatal]
